FAERS Safety Report 16181827 (Version 1)
Quarter: 2019Q2

REPORT INFORMATION
  Report Type: Report from Study
  Country: None (occurrence: US)
  Receive Date: 20190411
  Receipt Date: 20190411
  Transmission Date: 20190711
  Serious: Yes (Other)
  Sender: FDA-Public Use
  Company Number: US-ABBVIE-19K-163-2694755-00

PATIENT
  Age: 50 Year
  Sex: Male
  Weight: 81.72 kg

DRUGS (7)
  1. ALLOPURINOL. [Concomitant]
     Active Substance: ALLOPURINOL
     Indication: GOUT
  2. HUMIRA [Suspect]
     Active Substance: ADALIMUMAB
     Route: 058
     Dates: start: 201804, end: 201810
  3. HUMIRA [Suspect]
     Active Substance: ADALIMUMAB
     Indication: COLITIS ULCERATIVE
     Route: 058
     Dates: end: 201804
  4. HUMIRA [Suspect]
     Active Substance: ADALIMUMAB
     Route: 058
     Dates: start: 201811
  5. APRISO [Concomitant]
     Active Substance: MESALAMINE
     Indication: COLITIS ULCERATIVE
  6. LOSARTAN POTASSIUM. [Concomitant]
     Active Substance: LOSARTAN POTASSIUM
     Indication: BLOOD PRESSURE INCREASED
  7. FISH OIL [Concomitant]
     Active Substance: FISH OIL
     Indication: VITAMIN SUPPLEMENTATION

REACTIONS (2)
  - Osteoarthritis [Recovered/Resolved]
  - Colitis ulcerative [Recovered/Resolved]

NARRATIVE: CASE EVENT DATE: 201810
